FAERS Safety Report 5411675-2 (Version None)
Quarter: 2007Q3

REPORT INFORMATION
  Report Type: 
  Country: None (occurrence: None)
  Receive Date: 20070810
  Receipt Date: 20070802
  Transmission Date: 20080115
  Serious: Yes (Other)
  Sender: FDA-Public Use
  Company Number: JP-MERCK-0708USA01139

PATIENT
  Age: 78 Year
  Sex: Female

DRUGS (2)
  1. STROMECTOL [Suspect]
     Indication: ACARODERMATITIS
     Route: 048
     Dates: start: 20070718, end: 20070718
  2. EURAX [Concomitant]
     Route: 061
     Dates: start: 20070718

REACTIONS (1)
  - SHOCK [None]
